FAERS Safety Report 24083070 (Version 4)
Quarter: 2025Q2

REPORT INFORMATION
  Report Type: Report from Study
  Country: CA (occurrence: CA)
  Receive Date: 20240712
  Receipt Date: 20250619
  Transmission Date: 20250716
  Serious: Yes (Other)
  Sender: BIOCON
  Company Number: CA-BIOCON BIOLOGICS LIMITED-BBL2024004993

PATIENT

DRUGS (1)
  1. HULIO [Suspect]
     Active Substance: ADALIMUMAB-FKJP
     Indication: Ankylosing spondylitis
     Route: 058
     Dates: start: 20240807

REACTIONS (7)
  - Uveitis [Unknown]
  - Laboratory test abnormal [Unknown]
  - Pain [Unknown]
  - Pyrexia [Recovering/Resolving]
  - Injection site irritation [Recovered/Resolved]
  - Product use issue [Unknown]
  - Circumstance or information capable of leading to medication error [Unknown]
